FAERS Safety Report 4809092-9 (Version None)
Quarter: 2005Q4

REPORT INFORMATION
  Report Type: 
  Country: None (occurrence: None)
  Receive Date: 20051021
  Receipt Date: 20051021
  Transmission Date: 20060501
  Serious: Yes (Hospitalization)
  Sender: FDA-Public Use
  Company Number: None

PATIENT
  Age: 71 Year
  Sex: Male
  Weight: 89.7 kg

DRUGS (10)
  1. GEMCITABINE [Suspect]
     Indication: NON-SMALL CELL LUNG CANCER
  2. CARBOPLATIN [Suspect]
     Indication: NON-SMALL CELL LUNG CANCER
  3. AVANDIA [Concomitant]
  4. DIOVAN [Concomitant]
  5. LIPITOR [Concomitant]
  6. ZETIA [Concomitant]
  7. ALLOPURINOL [Concomitant]
  8. NIASPAN [Concomitant]
  9. LASIX [Concomitant]
  10. HUMIBID [Concomitant]

REACTIONS (1)
  - NO ADVERSE EFFECT [None]
